FAERS Safety Report 5939881-9 (Version None)
Quarter: 2008Q4

REPORT INFORMATION
  Report Type: 
  Country: None (occurrence: None)
  Receive Date: 20081104
  Receipt Date: 20081029
  Transmission Date: 20090506
  Serious: Yes (Death, Hospitalization, Other)
  Sender: FDA-Public Use
  Company Number: FR-BRISTOL-MYERS SQUIBB COMPANY-14388771

PATIENT
  Age: 65 Year
  Sex: Female

DRUGS (2)
  1. SPRYCEL [Suspect]
     Indication: ACUTE MYELOID LEUKAEMIA
     Dosage: DOSE PROGRESSIVELY DECREASED;DOSE ALTERED B/W 100 MG +150 MG;ON AN UNK DATE SUBSTITUTED FOR HYDREA
     Dates: start: 20020101
  2. HYDREA [Suspect]
     Indication: ACUTE MYELOID LEUKAEMIA
     Dosage: INITIATED 1/DAY THEN 2/DAY
     Dates: start: 20071001, end: 20071022

REACTIONS (12)
  - CEREBRAL HAEMORRHAGE [None]
  - DRUG TOLERANCE DECREASED [None]
  - FALL [None]
  - HAEMOGLOBIN DECREASED [None]
  - HEAD INJURY [None]
  - HERPES VIRUS INFECTION [None]
  - MALIGNANT NEOPLASM PROGRESSION [None]
  - ORAL HERPES [None]
  - PLATELET COUNT DECREASED [None]
  - SUBDURAL HAEMATOMA [None]
  - THROMBOCYTOPENIA [None]
  - WHITE BLOOD CELL COUNT DECREASED [None]
